FAERS Safety Report 7418217-0 (Version None)
Quarter: 2011Q2

REPORT INFORMATION
  Report Type: 
  Country: None (occurrence: None)
  Receive Date: 20110415
  Receipt Date: 20110401
  Transmission Date: 20111010
  Serious: Yes (Death)
  Sender: FDA-Public Use
  Company Number: US-CELGENEUS-163-21880-11040278

PATIENT
  Sex: Male

DRUGS (3)
  1. OMEPRAZOLE [Concomitant]
     Route: 065
  2. DEXAMETHASONE [Concomitant]
     Route: 065
  3. REVLIMID [Suspect]
     Dosage: 10 MILLIGRAM
     Route: 048
     Dates: start: 20100308, end: 20100101

REACTIONS (3)
  - NEOPLASM MALIGNANT [None]
  - NEUTROPENIA [None]
  - CHRONIC LYMPHOCYTIC LEUKAEMIA [None]
